FAERS Safety Report 25986012 (Version 4)
Quarter: 2025Q4

REPORT INFORMATION
  Report Type: Spontaneous
  Country: US (occurrence: US)
  Receive Date: 20251102
  Receipt Date: 20251230
  Transmission Date: 20260118
  Serious: Yes (Hospitalization)
  Sender: ELI LILLY AND COMPANY
  Company Number: US-ELI_LILLY_AND_COMPANY-US202510034693

PATIENT
  Age: 83 Year
  Sex: Female

DRUGS (19)
  1. BASAGLAR [Suspect]
     Active Substance: INSULIN GLARGINE
     Indication: Product used for unknown indication
     Dosage: UNK UNK, UNKNOWN
     Route: 058
     Dates: start: 20230511
  2. BASAGLAR [Suspect]
     Active Substance: INSULIN GLARGINE
     Indication: Product used for unknown indication
     Dosage: UNK UNK, UNKNOWN
     Route: 058
     Dates: start: 20230511
  3. BASAGLAR [Suspect]
     Active Substance: INSULIN GLARGINE
     Dosage: UNK UNK, UNKNOWN
     Route: 058
  4. BASAGLAR [Suspect]
     Active Substance: INSULIN GLARGINE
     Dosage: UNK UNK, UNKNOWN
     Route: 058
  5. BASAGLAR [Suspect]
     Active Substance: INSULIN GLARGINE
     Dosage: 22 U, EACH EVENING
     Route: 058
  6. BASAGLAR [Suspect]
     Active Substance: INSULIN GLARGINE
     Dosage: 22 U, EACH EVENING
     Route: 058
  7. BASAGLAR [Suspect]
     Active Substance: INSULIN GLARGINE
     Dosage: 22 U, EACH EVENING
     Route: 058
  8. BASAGLAR [Suspect]
     Active Substance: INSULIN GLARGINE
     Dosage: 22 U, EACH EVENING
     Route: 058
  9. BASAGLAR [Suspect]
     Active Substance: INSULIN GLARGINE
     Dosage: 22 U, EACH EVENING
     Route: 058
  10. BASAGLAR [Suspect]
     Active Substance: INSULIN GLARGINE
     Dosage: 22 U, EACH EVENING
     Route: 058
  11. BASAGLAR [Suspect]
     Active Substance: INSULIN GLARGINE
     Dosage: 22 U, EACH EVENING
     Route: 058
  12. BASAGLAR [Suspect]
     Active Substance: INSULIN GLARGINE
     Dosage: 22 U, EACH EVENING
     Route: 058
  13. BASAGLAR [Suspect]
     Active Substance: INSULIN GLARGINE
     Dosage: 22 U, EACH EVENING
     Route: 058
  14. BASAGLAR [Suspect]
     Active Substance: INSULIN GLARGINE
     Dosage: 22 U, EACH EVENING
     Route: 058
  15. BASAGLAR [Suspect]
     Active Substance: INSULIN GLARGINE
     Dosage: 22 U, UNKNOWN
     Route: 058
  16. BASAGLAR [Suspect]
     Active Substance: INSULIN GLARGINE
     Dosage: 22 U, UNKNOWN
     Route: 058
  17. METFORMIN [Concomitant]
     Active Substance: METFORMIN HYDROCHLORIDE
     Indication: Diabetes mellitus
  18. JANUVIA [Concomitant]
     Active Substance: SITAGLIPTIN PHOSPHATE
     Indication: Diabetes mellitus
  19. LIPITOR [Concomitant]
     Active Substance: ATORVASTATIN CALCIUM
     Indication: Diabetes mellitus

REACTIONS (6)
  - Cholelithiasis [Unknown]
  - Pneumonia [Unknown]
  - Expired product administered [Unknown]
  - Blood glucose increased [Unknown]
  - Accidental underdose [Unknown]
  - Injection site pain [Unknown]
